FAERS Safety Report 5356934-7 (Version None)
Quarter: 2007Q2

REPORT INFORMATION
  Report Type: 
  Country: None (occurrence: None)
  Receive Date: 20070530
  Receipt Date: 20061016
  Transmission Date: 20071010
  Serious: Yes (Other)
  Sender: FDA-Public Use
  Company Number: US200608003269

PATIENT
  Age: 20 Year
  Sex: Male
  Weight: 77.1 kg

DRUGS (6)
  1. ZYPREXA [Suspect]
     Dosage: 10 MG, 2/D,
     Dates: start: 20030101
  2. ABILIFY [Concomitant]
  3. GEODON [Concomitant]
  4. DIVALPROEX SODIUM [Concomitant]
  5. LITHIUM CARBONATE [Concomitant]
  6. INSULIN (INSULIN) [Concomitant]

REACTIONS (4)
  - BLOOD CHOLESTEROL ABNORMAL [None]
  - BLOOD TRIGLYCERIDES INCREASED [None]
  - DIABETES MELLITUS [None]
  - DIABETIC KETOACIDOSIS [None]
